FAERS Safety Report 22528930 (Version 2)
Quarter: 2023Q2

REPORT INFORMATION
  Report Type: Report from Study
  Country: DE (occurrence: None)
  Receive Date: 20230607
  Receipt Date: 20230609
  Transmission Date: 20230722
  Serious: Yes (Other)
  Sender: FDA-Public Use
  Company Number: DE-ROCHE-3362668

PATIENT
  Age: 43 Year
  Sex: Male
  Weight: 114 kg

DRUGS (11)
  1. OBINUTUZUMAB [Suspect]
     Active Substance: OBINUTUZUMAB
     Indication: Follicular lymphoma
     Dosage: DATE OF MOST RECENT DOSE OF OBINUTUZUMAB PRIOR TO AE ONSET: 11/NOV/2022.
     Route: 041
     Dates: start: 20211101, end: 20221111
  2. COPANLISIB [Suspect]
     Active Substance: COPANLISIB
     Indication: Follicular lymphoma
     Dosage: DATE OF MOST RECENT DOSE OF COPANLISIB PRIOR TO AE ONSET: 29/SEP/2022.
     Route: 041
     Dates: start: 20211101, end: 20220929
  3. ACYCLOVIR [Concomitant]
     Active Substance: ACYCLOVIR
     Dates: start: 20211101
  4. AMLODIPINE BESYLATE [Concomitant]
     Active Substance: AMLODIPINE BESYLATE
     Indication: Hypertension
     Dates: start: 20211101
  5. PANTOPRAZOLE SODIUM [Concomitant]
     Active Substance: PANTOPRAZOLE SODIUM
     Indication: Dyspepsia
     Dates: start: 20220123
  6. OPTIDERM OINTMENT [Concomitant]
     Indication: Pruritus
     Dates: start: 20220822
  7. FOLIC ACID [Concomitant]
     Active Substance: FOLIC ACID
     Indication: Blood folate decreased
     Dates: start: 20230116
  8. HYDROCORTISONACETAT [Concomitant]
     Indication: Mucosal inflammation
     Dates: start: 20230118
  9. CHOLECALCIFEROL [Concomitant]
     Active Substance: CHOLECALCIFEROL
     Indication: Hypovitaminosis
     Dates: start: 20230116
  10. COTRIM [Concomitant]
     Active Substance: SULFAMETHOXAZOLE\TRIMETHOPRIM
     Indication: Antifungal prophylaxis
     Dates: start: 20211101
  11. ALLOPURINOL [Concomitant]
     Active Substance: ALLOPURINOL
     Indication: Hyperuricaemia
     Dates: start: 20210729

REACTIONS (1)
  - Terminal ileitis [Not Recovered/Not Resolved]

NARRATIVE: CASE EVENT DATE: 20230210
